FAERS Safety Report 16921162 (Version 1)
Quarter: 2019Q4

REPORT INFORMATION
  Report Type: Spontaneous
  Country: CN (occurrence: CN)
  Receive Date: 20191015
  Receipt Date: 20191015
  Transmission Date: 20200122
  Serious: Yes (Life-Threatening, Hospitalization, Other)
  Sender: FDA-Public Use
  Company Number: CN-ELI_LILLY_AND_COMPANY-CN201910006746

PATIENT
  Age: 70 Year
  Sex: Female

DRUGS (4)
  1. PEMETREXED. [Suspect]
     Active Substance: PEMETREXED
     Indication: LUNG ADENOCARCINOMA STAGE IV
     Dosage: 800 MG, CYCLICAL
     Route: 065
     Dates: start: 20170213
  2. VITAMIN B12 [Concomitant]
     Active Substance: CYANOCOBALAMIN
     Indication: PREMEDICATION
     Dosage: 1 MG, SINGLE
     Route: 030
  3. CISPLATIN. [Suspect]
     Active Substance: CISPLATIN
     Indication: LUNG ADENOCARCINOMA STAGE IV
     Dosage: 120 MG, DAILY
     Route: 065
     Dates: start: 20170213, end: 20170329
  4. FOLIC ACID. [Concomitant]
     Active Substance: FOLIC ACID
     Indication: PREMEDICATION
     Dosage: 0.5 MG, DAILY
     Route: 048

REACTIONS (6)
  - Bone marrow failure [Recovered/Resolved]
  - Acute kidney injury [Unknown]
  - Leukopenia [Unknown]
  - Stomatitis [Unknown]
  - Granulocytopenia [Unknown]
  - Drug clearance decreased [Unknown]
